FAERS Safety Report 12114423 (Version 1)
Quarter: 2016Q1

REPORT INFORMATION
  Report Type: Spontaneous
  Country: US (occurrence: None)
  Receive Date: 20160224
  Receipt Date: 20160224
  Transmission Date: 20160526
  Serious: Yes (Hospitalization)
  Sender: FDA-Public Use
  Company Number: None

PATIENT
  Age: 64 Year
  Sex: Male
  Weight: 99.6 kg

DRUGS (14)
  1. HALOBETASOL [Concomitant]
     Active Substance: HALOBETASOL PROPIONATE
  2. LORATADINE. [Concomitant]
     Active Substance: LORATADINE
  3. PROXHLORPERAZINE [Concomitant]
  4. SOFASBUVIR 400 MG GILEAD [Suspect]
     Active Substance: SOFOSBUVIR
     Indication: HEPATITIS C
     Route: 048
     Dates: start: 20151111
  5. CITALOPRAM [Concomitant]
     Active Substance: CITALOPRAM HYDROBROMIDE
  6. DIPHENOXYLATE-ATROPINE [Concomitant]
  7. TRIMACINOLONE [Concomitant]
  8. DACLATAVIR 60 MG BMS [Suspect]
     Active Substance: DACLATASVIR
     Indication: HEPATITIS C
     Route: 048
     Dates: start: 20151111
  9. DIPHENHYDRAMINE. [Concomitant]
     Active Substance: DIPHENHYDRAMINE
  10. DIAZEPAM. [Concomitant]
     Active Substance: DIAZEPAM
  11. CHOLECALCIFEROL [Concomitant]
     Active Substance: CHOLECALCIFEROL
  12. CLOBETASOL [Concomitant]
     Active Substance: CLOBETASOL
  13. DOXASIN [Concomitant]
  14. OXYCODONE-ACETAMINOPHEN [Concomitant]
     Active Substance: ACETAMINOPHEN\OXYCODONE HYDROCHLORIDE

REACTIONS (8)
  - Urinary tract infection [None]
  - Cystitis [None]
  - Myalgia [None]
  - Respiratory tract infection bacterial [None]
  - Headache [None]
  - Cough [None]
  - Respiratory tract infection viral [None]
  - Chest X-ray abnormal [None]

NARRATIVE: CASE EVENT DATE: 20160105
